FAERS Safety Report 25399032 (Version 1)
Quarter: 2025Q2

REPORT INFORMATION
  Report Type: Report from Study
  Country: SA (occurrence: SA)
  Receive Date: 20250605
  Receipt Date: 20250605
  Transmission Date: 20250717
  Serious: Yes (Hospitalization, Other)
  Sender: GLAXOSMITHKLINE
  Company Number: SA-GLAXOSMITHKLINE INC-SA2025068606

PATIENT

DRUGS (1)
  1. MEPOLIZUMAB [Suspect]
     Active Substance: MEPOLIZUMAB
     Indication: Asthma
     Dosage: 100 MG, MO
     Dates: start: 20241130

REACTIONS (12)
  - Dyspnoea [Not Recovered/Not Resolved]
  - Fatigue [Unknown]
  - Cardiomyopathy [Unknown]
  - Apnoea [Unknown]
  - Pain [Recovered/Resolved]
  - Cold sweat [Unknown]
  - Dry mouth [Unknown]
  - Speech disorder [Unknown]
  - Aphonia [Unknown]
  - Lethargy [Unknown]
  - Palpitations [Unknown]
  - Sleep apnoea syndrome [Unknown]
